FAERS Safety Report 10761352 (Version 1)
Quarter: 2015Q1

REPORT INFORMATION
  Report Type: Spontaneous
  Country: US (occurrence: None)
  Receive Date: 20150203
  Receipt Date: 20150203
  Transmission Date: 20150721
  Serious: Yes (Hospitalization)
  Sender: FDA-Public Use
  Company Number: None

PATIENT
  Age: 66 Year
  Sex: Male
  Weight: 81.7 kg

DRUGS (1)
  1. INSULIN [Suspect]
     Active Substance: INSULIN NOS
     Indication: TYPE 1 DIABETES MELLITUS
     Dosage: 12 UNITS TID SC
     Route: 058
     Dates: start: 20110720, end: 20150127

REACTIONS (2)
  - Hypoglycaemia [None]
  - Subdural haematoma [None]

NARRATIVE: CASE EVENT DATE: 20150127
